FAERS Safety Report 10936302 (Version 1)
Quarter: 2015Q1

REPORT INFORMATION
  Report Type: Spontaneous
  Country: US (occurrence: None)
  Receive Date: 20150320
  Receipt Date: 20150320
  Transmission Date: 20150721
  Serious: Yes (Other)
  Sender: FDA-Public Use
  Company Number: None

PATIENT
  Age: 56 Year
  Sex: Female
  Weight: 61.24 kg

DRUGS (1)
  1. CIPRO [Suspect]
     Active Substance: CIPROFLOXACIN HYDROCHLORIDE
     Indication: URINARY TRACT INFECTION
     Dosage: 2 XDAILY
     Route: 048
     Dates: start: 20140606, end: 20140615

REACTIONS (9)
  - Back pain [None]
  - Body temperature decreased [None]
  - Temperature intolerance [None]
  - Hypothyroidism [None]
  - Depression [None]
  - Peripheral coldness [None]
  - Gastrointestinal disorder [None]
  - Adrenal disorder [None]
  - Heart rate decreased [None]

NARRATIVE: CASE EVENT DATE: 20140606
